FAERS Safety Report 20940613 (Version 1)
Quarter: 2022Q2

REPORT INFORMATION
  Report Type: Spontaneous
  Country: US (occurrence: US)
  Receive Date: 20220609
  Receipt Date: 20220609
  Transmission Date: 20220721
  Serious: Yes (Hospitalization, Other)
  Sender: FDA-Public Use
  Company Number: US-BAUSCH-BL-2022-013408

PATIENT
  Age: 27 Year
  Sex: Female

DRUGS (2)
  1. DILTIAZEM HYDROCHLORIDE [Suspect]
     Active Substance: DILTIAZEM HYDROCHLORIDE
     Indication: Product dispensing error
     Dosage: 3 MONTHS 30 DAYS 7 HRS 12 MIN
     Route: 048
     Dates: start: 199008, end: 19901231
  2. DILTIAZEM HYDROCHLORIDE [Suspect]
     Active Substance: DILTIAZEM HYDROCHLORIDE
     Dosage: CHANGED TO AS NEEDED
     Route: 048
     Dates: start: 199101

REACTIONS (43)
  - Chest discomfort [Unknown]
  - Condition aggravated [Unknown]
  - Hypokalaemia [Unknown]
  - Hypocalcaemia [Unknown]
  - Hypomagnesaemia [Unknown]
  - Uterine tachysystole [Recovered/Resolved]
  - Influenza [Recovering/Resolving]
  - Uterine tachysystole [Recovered/Resolved]
  - Condition aggravated [Recovered/Resolved]
  - Chest pain [Unknown]
  - Condition aggravated [Unknown]
  - Gastroenteritis [Recovered/Resolved]
  - Chest pain [Unknown]
  - Hyperhidrosis [Unknown]
  - Cholecystitis chronic [Unknown]
  - Arteriospasm coronary [Unknown]
  - Condition aggravated [Unknown]
  - Arteriospasm coronary [Unknown]
  - Biliary colic [Unknown]
  - Musculoskeletal chest pain [Unknown]
  - Chest discomfort [Unknown]
  - Abdominal pain lower [Unknown]
  - Gastrooesophageal reflux disease [Unknown]
  - Chest discomfort [Unknown]
  - Muscle spasms [Unknown]
  - Condition aggravated [Unknown]
  - Vision blurred [Unknown]
  - Eructation [Unknown]
  - Abdominal distension [Unknown]
  - Diarrhoea [Unknown]
  - Abdominal pain upper [Unknown]
  - Tachycardia [Unknown]
  - Bronchospasm [Unknown]
  - Syncope [Unknown]
  - Dyspnoea [Unknown]
  - Nausea [Unknown]
  - Hypoaesthesia [Unknown]
  - Dyspnoea [Unknown]
  - Paraesthesia [Unknown]
  - Vomiting [Unknown]
  - Gastrointestinal pain [Unknown]
  - Product dispensing error [Unknown]
  - Maternal exposure during pregnancy [Unknown]

NARRATIVE: CASE EVENT DATE: 19901231
